FAERS Safety Report 4486527-5 (Version None)
Quarter: 2004Q4

REPORT INFORMATION
  Report Type: 
  Country: None (occurrence: None)
  Receive Date: 20041022
  Receipt Date: 20041006
  Transmission Date: 20050328
  Serious: Yes (Death)
  Sender: FDA-Public Use
  Company Number: 2004-BP-09624RO

PATIENT
  Age: 20 Year
  Sex: Female
  Weight: 55 kg

DRUGS (2)
  1. COCAINE HCL TOPICAL SOLUTION, 10% (COCAINE) [Suspect]
     Dosage: IH
     Route: 055
  2. BARBITURATES (BARBITURATES) [Suspect]

REACTIONS (3)
  - DRUG TOXICITY [None]
  - MEDICATION ERROR [None]
  - MULTIPLE DRUG OVERDOSE [None]
